FAERS Safety Report 6403771-8 (Version None)
Quarter: 2009Q4

REPORT INFORMATION
  Report Type: 
  Country: None (occurrence: None)
  Receive Date: 20091013
  Receipt Date: 20090928
  Transmission Date: 20100525
  Serious: Yes (Other)
  Sender: FDA-Public Use
  Company Number: ENT 2009-0166

PATIENT
  Age: 70 Year
  Sex: Female

DRUGS (9)
  1. COMTAN [Suspect]
     Dosage: 400 MG ORAL, 300 MG ORAL
     Route: 048
     Dates: end: 20090909
  2. COMTAN [Suspect]
     Dosage: 400 MG ORAL, 300 MG ORAL
     Route: 048
     Dates: start: 20090910
  3. MENESIT [Concomitant]
  4. SYMMETREL [Concomitant]
  5. MUCOSTA [Concomitant]
  6. MUCOSOLVAN [Concomitant]
  7. LUDIOMIL [Concomitant]
  8. HALCION [Concomitant]
  9. RIKKUNSHI-TO [Concomitant]

REACTIONS (2)
  - BLOOD CREATINE PHOSPHOKINASE INCREASED [None]
  - FALL [None]
